FAERS Safety Report 11518205 (Version 2)
Quarter: 2015Q3

REPORT INFORMATION
  Report Type: Spontaneous
  Country: US (occurrence: US)
  Receive Date: 20150917
  Receipt Date: 20150924
  Transmission Date: 20151125
  Serious: Yes (Other)
  Sender: FDA-Public Use
  Company Number: US-PFIZER INC-2015305424

PATIENT
  Age: 73 Year
  Sex: Female
  Weight: 69 kg

DRUGS (2)
  1. DOXEPIN HCL [Suspect]
     Active Substance: DOXEPIN HYDROCHLORIDE
     Indication: SLEEP DISORDER
     Dosage: 100 MG EVERY NIGHT
     Dates: start: 201310
  2. DOXEPIN HCL [Suspect]
     Active Substance: DOXEPIN HYDROCHLORIDE
     Dosage: 150 MG EVERY NIGHT
     Dates: start: 201410

REACTIONS (9)
  - Femur fracture [Unknown]
  - Diarrhoea [Unknown]
  - Fall [Unknown]
  - Rotator cuff syndrome [Unknown]
  - Ageusia [Not Recovered/Not Resolved]
  - Hip fracture [Unknown]
  - Therapeutic response unexpected [Unknown]
  - Spinal fracture [Unknown]
  - Anosmia [Not Recovered/Not Resolved]

NARRATIVE: CASE EVENT DATE: 20140714
